FAERS Safety Report 10633154 (Version 1)
Quarter: 2014Q4

REPORT INFORMATION
  Report Type: Spontaneous
  Country: US (occurrence: US)
  Receive Date: 20141205
  Receipt Date: 20141205
  Transmission Date: 20150529
  Serious: No
  Sender: FDA-Public Use
  Company Number: US-BRISTOL-MYERS SQUIBB COMPANY-21513767

PATIENT
  Age: 68 Year
  Sex: Female
  Weight: 71.65 kg

DRUGS (6)
  1. PROTONIX [Concomitant]
     Active Substance: PANTOPRAZOLE SODIUM
  2. LISINOPRIL. [Concomitant]
     Active Substance: LISINOPRIL
  3. ORENCIA [Suspect]
     Active Substance: ABATACEPT
     Route: 042
     Dates: end: 20140902
  4. FLONASE [Concomitant]
     Active Substance: FLUTICASONE PROPIONATE
  5. SOTALOL. [Concomitant]
     Active Substance: SOTALOL
  6. FLOVENT [Concomitant]
     Active Substance: FLUTICASONE PROPIONATE

REACTIONS (5)
  - Condition aggravated [Unknown]
  - Headache [Unknown]
  - Nervousness [Unknown]
  - Paraesthesia [Not Recovered/Not Resolved]
  - Hot flush [Unknown]

NARRATIVE: CASE EVENT DATE: 2014
